FAERS Safety Report 12463759 (Version 2)
Quarter: 2016Q4

REPORT INFORMATION
  Report Type: Spontaneous
  Country: JP (occurrence: JP)
  Receive Date: 20160614
  Receipt Date: 20161009
  Transmission Date: 20170207
  Serious: Yes (Other)
  Sender: FDA-Public Use
  Company Number: JP-BRISTOL-MYERS SQUIBB COMPANY-BMS-2015-093941

PATIENT
  Age: 72 Year
  Sex: Male

DRUGS (12)
  1. OPDIVO [Suspect]
     Active Substance: NIVOLUMAB
     Route: 041
  2. OPDIVO [Suspect]
     Active Substance: NIVOLUMAB
     Route: 041
  3. OPDIVO [Suspect]
     Active Substance: NIVOLUMAB
     Route: 041
  4. OPDIVO [Suspect]
     Active Substance: NIVOLUMAB
     Route: 041
  5. OPDIVO [Suspect]
     Active Substance: NIVOLUMAB
     Route: 041
  6. OPDIVO [Suspect]
     Active Substance: NIVOLUMAB
     Route: 041
  7. OPDIVO [Suspect]
     Active Substance: NIVOLUMAB
     Route: 041
  8. OPDIVO [Suspect]
     Active Substance: NIVOLUMAB
     Route: 041
  9. OPDIVO [Suspect]
     Active Substance: NIVOLUMAB
     Route: 041
  10. OPDIVO [Suspect]
     Active Substance: NIVOLUMAB
     Route: 041
  11. OPDIVO [Suspect]
     Active Substance: NIVOLUMAB
     Indication: MALIGNANT MELANOMA
     Route: 041
  12. OPDIVO [Suspect]
     Active Substance: NIVOLUMAB
     Route: 041

REACTIONS (2)
  - Pneumonia [Recovering/Resolving]
  - Leukoderma [Unknown]
